FAERS Safety Report 14434199 (Version 2)
Quarter: 2019Q1

REPORT INFORMATION
  Report Type: Spontaneous
  Country: US (occurrence: US)
  Receive Date: 20180124
  Receipt Date: 20190204
  Transmission Date: 20190417
  Serious: No
  Sender: FDA-Public Use
  Company Number: US-ABBVIE-17K-163-1833769-00

PATIENT

DRUGS (1)
  1. HUMIRA [Suspect]
     Active Substance: ADALIMUMAB
     Indication: JUVENILE IDIOPATHIC ARTHRITIS
     Route: 058

REACTIONS (8)
  - Arthropathy [Not Recovered/Not Resolved]
  - Sensitivity to weather change [Unknown]
  - Arthralgia [Unknown]
  - Fumbling [Unknown]
  - Erythema [Unknown]
  - Seasonal affective disorder [Unknown]
  - Swelling face [Unknown]
  - Headache [Unknown]

NARRATIVE: CASE EVENT DATE: 20180928
